FAERS Safety Report 7464576-2 (Version None)
Quarter: 2011Q2

REPORT INFORMATION
  Report Type: 
  Country: None (occurrence: None)
  Receive Date: 20110509
  Receipt Date: 20110426
  Transmission Date: 20111010
  Serious: No
  Sender: FDA-Public Use
  Company Number: US-JNJFOC-20110500049

PATIENT
  Sex: Female
  Weight: 54.43 kg

DRUGS (18)
  1. FENTANYL-100 [Suspect]
     Indication: ARTHRITIS
     Route: 065
  2. FENTANYL-100 [Suspect]
     Indication: SYSTEMIC LUPUS ERYTHEMATOSUS
     Route: 062
  3. FENTANYL-100 [Suspect]
     Route: 062
  4. FENTANYL-100 [Suspect]
     Route: 062
  5. FENTANYL-100 [Suspect]
     Route: 062
  6. FENTANYL-100 [Suspect]
     Indication: ARTHRITIS
     Route: 062
  7. FENTANYL-100 [Suspect]
     Indication: SYSTEMIC LUPUS ERYTHEMATOSUS
     Route: 062
  8. FENTANYL-100 [Suspect]
     Indication: SYSTEMIC LUPUS ERYTHEMATOSUS
     Route: 065
  9. FENTANYL-100 [Suspect]
     Indication: ARTHRITIS
     Route: 062
  10. FENTANYL-100 [Suspect]
     Route: 062
  11. FENTANYL-100 [Suspect]
     Route: 062
  12. FENTANYL-100 [Suspect]
     Route: 062
  13. FENTANYL-100 [Suspect]
     Route: 062
  14. FENTANYL-100 [Suspect]
     Indication: HIP ARTHROPLASTY
     Route: 062
  15. FENTANYL-100 [Suspect]
     Route: 062
  16. FENTANYL-100 [Suspect]
     Indication: HIP ARTHROPLASTY
     Route: 062
  17. FENTANYL-100 [Suspect]
     Indication: HIP ARTHROPLASTY
     Route: 065
  18. FENTANYL-100 [Suspect]
     Route: 062

REACTIONS (7)
  - WRONG TECHNIQUE IN DRUG USAGE PROCESS [None]
  - APPLICATION SITE BLEEDING [None]
  - HEPATIC ENZYME INCREASED [None]
  - APPLICATION SITE VESICLES [None]
  - APPLICATION SITE IRRITATION [None]
  - DRUG INEFFECTIVE [None]
  - APPLICATION SITE PAIN [None]
